FAERS Safety Report 18750599 (Version 1)
Quarter: 2021Q1

REPORT INFORMATION
  Report Type: Spontaneous
  Country: ES (occurrence: ES)
  Receive Date: 20210118
  Receipt Date: 20210118
  Transmission Date: 20210419
  Serious: Yes (Other)
  Sender: FDA-Public Use
  Company Number: ES-STRIDES ARCOLAB LIMITED-2021SP000741

PATIENT
  Age: 35 Year
  Sex: Male

DRUGS (6)
  1. PREDNISOLONE. [Interacting]
     Active Substance: PREDNISOLONE
     Dosage: 30 MILLIGRAM EVERY 24 HOURS
     Route: 065
  2. MELATONIN [Interacting]
     Active Substance: MELATONIN
     Indication: INSOMNIA
     Dosage: 1.95 MILLIGRAM PER DAY
     Route: 065
  3. MYCOPHENOLATE MOFETIL. [Suspect]
     Active Substance: MYCOPHENOLATE MOFETIL
     Indication: MYASTHENIA GRAVIS
     Dosage: 540 MG DAILY IN TWO DIVIDED DOSES
     Route: 065
  4. DOXYLAMINE [Concomitant]
     Active Substance: DOXYLAMINE
     Indication: INSOMNIA
     Dosage: UNK
     Route: 065
  5. PREDNISOLONE. [Interacting]
     Active Substance: PREDNISOLONE
     Indication: MYASTHENIA GRAVIS
     Dosage: 15 MILLIGRAM EVERY 48HOURS
     Route: 065
  6. PYRIDOSTIGMINE [Concomitant]
     Active Substance: PYRIDOSTIGMINE
     Indication: MYASTHENIA GRAVIS
     Dosage: 60 MILLIGRAM, EVERY 4 HRS
     Route: 065

REACTIONS (3)
  - Drug interaction [Unknown]
  - Myasthenia gravis [Recovered/Resolved]
  - Off label use [Unknown]
